FAERS Safety Report 6908181-2 (Version None)
Quarter: 2010Q3

REPORT INFORMATION
  Report Type: 
  Country: None (occurrence: None)
  Receive Date: 20100708
  Receipt Date: 20090225
  Transmission Date: 20110219
  Serious: Yes (Other)
  Sender: FDA-Public Use
  Company Number: 2009156418

PATIENT
  Age: 35 Year
  Sex: Female

DRUGS (4)
  1. CHANTIX [Suspect]
     Dosage: ORAL
     Route: 048
     Dates: end: 20081125
  2. ORAL CONTRACEPTIVE PILL (ORAL CONTRACEPTIVE NOS) [Concomitant]
  3. PROCARDIA [Concomitant]
  4. WELLBUTRIN [Concomitant]

REACTIONS (14)
  - AFFECTIVE DISORDER [None]
  - AGITATION [None]
  - ALTERED STATE OF CONSCIOUSNESS [None]
  - ANXIETY [None]
  - CONFUSIONAL STATE [None]
  - DISTURBANCE IN ATTENTION [None]
  - HALLUCINATION, AUDITORY [None]
  - ILLUSION [None]
  - INSOMNIA [None]
  - MENTAL STATUS CHANGES [None]
  - PSYCHOTIC DISORDER [None]
  - SENSORY DISTURBANCE [None]
  - VISION BLURRED [None]
  - WITHDRAWAL SYNDROME [None]
